FAERS Safety Report 16809669 (Version 6)
Quarter: 2019Q4

REPORT INFORMATION
  Report Type: Spontaneous
  Country: US (occurrence: US)
  Receive Date: 20190916
  Receipt Date: 20191016
  Transmission Date: 20200122
  Serious: Yes (Other)
  Sender: FDA-Public Use
  Company Number: US-AMGEN-USASP2019150463

PATIENT
  Age: 70 Year
  Sex: Male
  Weight: 120 kg

DRUGS (13)
  1. VENOFER [Concomitant]
     Active Substance: IRON SUCROSE
     Dosage: 50
     Dates: start: 20190408, end: 20190429
  2. ARANESP [Suspect]
     Active Substance: DARBEPOETIN ALFA
     Indication: NEPHROGENIC ANAEMIA
     Dosage: 200 MICROGRAM, QWK
     Route: 065
     Dates: start: 201808, end: 201908
  3. ROCEPHIN [Concomitant]
     Active Substance: CEFTRIAXONE SODIUM
     Indication: NOCARDIOSIS
     Dosage: UNK
     Dates: start: 20190812, end: 20190913
  4. ATARAXONE [HYDROXYZINE] [Concomitant]
     Indication: PRURITUS
     Dosage: 10 MILLIGRAM, BID
     Route: 048
     Dates: start: 2015
  5. EPOGEN [Suspect]
     Active Substance: ERYTHROPOIETIN
     Indication: NEPHROGENIC ANAEMIA
     Dosage: 3000 TO 4000 UNITS, 3 TIMES/WK
     Route: 065
     Dates: start: 201412, end: 2018
  6. EPOGEN [Suspect]
     Active Substance: ERYTHROPOIETIN
     Dosage: 20000 UNIT, 3 TIMES/WK
     Route: 065
     Dates: start: 201808, end: 20190911
  7. IRON [Concomitant]
     Active Substance: IRON
     Indication: NEPHROGENIC ANAEMIA
     Dosage: UNK
  8. SYNTHROID [Concomitant]
     Active Substance: LEVOTHYROXINE SODIUM
     Indication: THYROID DISORDER
     Dosage: 50 MICROGRAM, ONE TIME DOSE
     Route: 048
     Dates: start: 2015
  9. HEPARIN [Concomitant]
     Active Substance: HEPARIN SODIUM
     Dosage: 2000
     Dates: start: 20190408, end: 20190918
  10. CEFTRIAXONE SODIUM. [Concomitant]
     Active Substance: CEFTRIAXONE SODIUM
     Dosage: 2000
     Dates: start: 20190408, end: 20190902
  11. METOPROLOL. [Concomitant]
     Active Substance: METOPROLOL
     Indication: BLOOD PRESSURE ABNORMAL
     Dosage: 25 MILLIGRAM, QD
     Route: 048
     Dates: start: 2015
  12. CARNITOR [Concomitant]
     Active Substance: LEVOCARNITINE
     Dosage: UNK
     Dates: start: 20190701
  13. DIGOXIN. [Concomitant]
     Active Substance: DIGOXIN
     Indication: ATRIAL FIBRILLATION
     Dosage: 0.125 MILLIGRAM, THREE TIMES A WEEK (MONDAY-WEDNESDAY-FRIDAY (MWF)
     Dates: start: 2015

REACTIONS (2)
  - Aplasia pure red cell [Unknown]
  - Therapy non-responder [Unknown]

NARRATIVE: CASE EVENT DATE: 2019
